FAERS Safety Report 14298365 (Version 1)
Quarter: 2017Q4

REPORT INFORMATION
  Report Type: Spontaneous
  Country: US (occurrence: US)
  Receive Date: 20171215
  Receipt Date: 20171215
  Transmission Date: 20180321
  Serious: No
  Sender: FDA-Public Use
  Company Number: None

PATIENT
  Age: 49 Year
  Sex: Male
  Weight: 76.5 kg

DRUGS (4)
  1. VA;SARTAM [Concomitant]
  2. TRAZODONE [Concomitant]
     Active Substance: TRAZODONE HYDROCHLORIDE
  3. BUPROPION XL 300MG [Suspect]
     Active Substance: BUPROPION
     Indication: DEPRESSION
     Dosage: ?          QUANTITY:1 TABLET(S);?
     Route: 048
     Dates: start: 20171205, end: 20171214
  4. TESTOSTERONE CYPIONATE. [Concomitant]
     Active Substance: TESTOSTERONE CYPIONATE

REACTIONS (10)
  - Tremor [None]
  - Anxiety [None]
  - Feeling abnormal [None]
  - Product substitution issue [None]
  - Insomnia [None]
  - Tachyphrenia [None]
  - Palpitations [None]
  - Product quality issue [None]
  - Hyperaesthesia [None]
  - Fatigue [None]

NARRATIVE: CASE EVENT DATE: 20171206
